FAERS Safety Report 8546913 (Version 2)
Quarter: 2012Q4

REPORT INFORMATION
  Report Type: 
  Country: JP (occurrence: JP)
  Receive Date: 20120504
  Receipt Date: 20121126
  Transmission Date: 20130627
  Serious: Yes (Other)
  Sender: FDA-Public Use
  Company Number: JP-NOVOPROD-350340

PATIENT
  Age: 53 Year
  Sex: Female
  Weight: 62 kg

DRUGS (8)
  1. LEVEMIR FLEXPEN [Suspect]
     Indication: TYPE 2 DIABETES MELLITUS
     Dosage: 16 U, qd
     Route: 058
     Dates: start: 20090225, end: 20090526
  2. LEVEMIR FLEXPEN [Suspect]
     Dosage: 12 U, qd
     Route: 058
     Dates: start: 20120229, end: 20120326
  3. GLIBENCLAMIDE [Concomitant]
     Indication: TYPE 2 DIABETES MELLITUS
     Dosage: 7.5 mg, qd
     Route: 048
     Dates: start: 20120224
  4. METFORMIN [Concomitant]
     Indication: TYPE 2 DIABETES MELLITUS
     Dosage: 1500 mg, qd
     Route: 048
     Dates: start: 20120224
  5. SITAGLIPTIN PHOSPHATE [Concomitant]
     Indication: TYPE 2 DIABETES MELLITUS
     Dosage: 50 mg, qd
     Route: 048
     Dates: start: 20120224
  6. PITAVASTATIN CALCIUM [Concomitant]
     Dosage: 1 mg, qd
     Route: 048
     Dates: start: 20120224
  7. ZETIA [Concomitant]
     Dosage: 10 mg, qd
     Route: 048
     Dates: start: 20090225, end: 20090526
  8. MELBIN                             /00082702/ [Concomitant]
     Dosage: 750 mg, qd
     Route: 048
     Dates: start: 20090225, end: 20090526

REACTIONS (2)
  - Meningioma [Not Recovered/Not Resolved]
  - Neoplasm recurrence [Not Recovered/Not Resolved]
